FAERS Safety Report 16430642 (Version 1)
Quarter: 2019Q2

REPORT INFORMATION
  Report Type: Spontaneous
  Country: DK (occurrence: DK)
  Receive Date: 20190614
  Receipt Date: 20190614
  Transmission Date: 20190711
  Serious: Yes (Hospitalization)
  Sender: FDA-Public Use
  Company Number: DK-ACTELION-A-CH2019-191521

PATIENT

DRUGS (1)
  1. BOSENTAN. [Suspect]
     Active Substance: BOSENTAN
     Indication: FONTAN PROCEDURE
     Route: 048

REACTIONS (15)
  - Dyspepsia [Unknown]
  - Chest pain [Unknown]
  - Blood pressure systolic decreased [Unknown]
  - Syncope [Unknown]
  - Fatigue [Unknown]
  - Back pain [Unknown]
  - Influenza [Unknown]
  - Transaminases increased [Unknown]
  - Palpitations [Unknown]
  - Nausea [Unknown]
  - Protein-losing gastroenteropathy [Unknown]
  - Haemoglobin decreased [Unknown]
  - Flushing [Unknown]
  - Pruritus [Unknown]
  - Arthralgia [Unknown]
